FAERS Safety Report 13954144 (Version 1)
Quarter: 2017Q3

REPORT INFORMATION
  Report Type: Spontaneous
  Country: US (occurrence: None)
  Receive Date: 20170911
  Receipt Date: 20170911
  Transmission Date: 20171128
  Serious: Yes (Other)
  Sender: FDA-Public Use
  Company Number: None

PATIENT
  Age: 55 Year
  Sex: Female
  Weight: 60.33 kg

DRUGS (9)
  1. SYNTHROID [Concomitant]
     Active Substance: LEVOTHYROXINE SODIUM
  2. PREDNISONE. [Concomitant]
     Active Substance: PREDNISONE
  3. VITAMIN D [Concomitant]
     Active Substance: CHOLECALCIFEROL
  4. CIPRODEX [Suspect]
     Active Substance: CIPROFLOXACIN HYDROCHLORIDE\DEXAMETHASONE
     Indication: OTITIS MEDIA
     Dosage: 4 DROPS IN RIGHT EAR 2X DAILY FOR 7 DAYS
     Dates: start: 20170812, end: 20170813
  5. CLINDAMYCIN. [Concomitant]
     Active Substance: CLINDAMYCIN
  6. CALCIUM [Concomitant]
     Active Substance: CALCIUM
  7. VIT B [Concomitant]
     Active Substance: VITAMIN B
  8. CIPRODEX [Suspect]
     Active Substance: CIPROFLOXACIN HYDROCHLORIDE\DEXAMETHASONE
     Indication: OCULAR HYPERAEMIA
     Dosage: 4 DROPS IN RIGHT EAR 2X DAILY FOR 7 DAYS
     Dates: start: 20170812, end: 20170813
  9. CULTURELLE [Concomitant]
     Active Substance: LACTOBACILLUS RHAMNOSUS

REACTIONS (9)
  - Headache [None]
  - Dizziness [None]
  - Pain in jaw [None]
  - Deafness unilateral [None]
  - Ear pain [None]
  - Speech disorder [None]
  - Neck pain [None]
  - Gait inability [None]
  - Tinnitus [None]

NARRATIVE: CASE EVENT DATE: 20170813
